APPROVED DRUG PRODUCT: IRINOTECAN HYDROCHLORIDE
Active Ingredient: IRINOTECAN HYDROCHLORIDE
Strength: 40MG/2ML (20MG/ML)
Dosage Form/Route: INJECTABLE;INJECTION
Application: A090016 | Product #001
Applicant: HISUN PHARMACEUTICAL (HANGZHOU) CO LTD
Approved: Jan 28, 2009 | RLD: No | RS: No | Type: DISCN